FAERS Safety Report 21339169 (Version 13)
Quarter: 2024Q1

REPORT INFORMATION
  Report Type: Spontaneous
  Country: IN (occurrence: IN)
  Receive Date: 20220915
  Receipt Date: 20240213
  Transmission Date: 20240409
  Serious: Yes (Death, Other)
  Sender: FDA-Public Use
  Company Number: IN-PFIZER INC-PV202200062596

PATIENT
  Age: 76 Year
  Sex: Male
  Weight: 48.9 kg

DRUGS (8)
  1. DACOMITINIB [Suspect]
     Active Substance: DACOMITINIB
     Indication: Non-small cell lung cancer metastatic
     Dosage: 30 MG, 1X/DAY
     Route: 048
     Dates: start: 20220808
  2. DACOMITINIB [Suspect]
     Active Substance: DACOMITINIB
     Dosage: ONE TABLET DAILY 1 HOUR BEFORE MEAL
     Route: 048
  3. DACOMITINIB [Suspect]
     Active Substance: DACOMITINIB
     Dosage: 30 MG
     Route: 048
     Dates: start: 202208, end: 202401
  4. DOXYCYCLINE [Concomitant]
     Active Substance: DOXYCYCLINE
     Indication: Rash
     Dosage: 100 MG, 1X/DAY
  5. HYDROCORTISONE [Concomitant]
     Active Substance: HYDROCORTISONE
     Indication: Rash
     Dosage: UNK
     Route: 061
  6. LOPERAMIDE HYDROCHLORIDE [Concomitant]
     Active Substance: LOPERAMIDE HYDROCHLORIDE
     Indication: Diarrhoea
     Dosage: 1 TAB, AS NEEDED (SOS)
  7. MEGEETRON [Concomitant]
     Dosage: 160 MG, 2X/DAY
  8. RANITIDINE HYDROCHLORIDE [Concomitant]
     Active Substance: RANITIDINE HYDROCHLORIDE
     Dosage: 150MG - BDAC (IF REQUIRED)

REACTIONS (13)
  - Cardiopulmonary failure [Fatal]
  - Carcinoembryonic antigen increased [Unknown]
  - Blood pressure increased [Unknown]
  - Arteriosclerosis coronary artery [Unknown]
  - Aspartate aminotransferase increased [Unknown]
  - Alanine aminotransferase increased [Unknown]
  - Dry skin [Unknown]
  - Rash [Unknown]
  - Gamma-glutamyltransferase increased [Unknown]
  - Prostatomegaly [Unknown]
  - Emotional distress [Unknown]
  - Pain [Unknown]
  - Blood creatinine increased [Unknown]

NARRATIVE: CASE EVENT DATE: 20220920
